FAERS Safety Report 5526166-8 (Version None)
Quarter: 2007Q4

REPORT INFORMATION
  Report Type: 
  Country: None (occurrence: None)
  Receive Date: 20071120
  Receipt Date: 20071112
  Transmission Date: 20080405
  Serious: Yes (Life-Threatening, Other)
  Sender: FDA-Public Use
  Company Number: 430002E07NLD

PATIENT
  Age: 67 Year
  Sex: Female

DRUGS (23)
  1. NOVANTRONE [Suspect]
     Dosage: 13 MG
     Dates: start: 20070313, end: 20070319
  2. GEMTUZUMAB OZOGAMICIN (GEMTUZUMAB OZOGAMICIN) [Suspect]
     Dosage: 5 MG
     Dates: start: 20070116, end: 20070424
  3. CYTARABINE [Suspect]
     Dosage: 100 MG
     Dates: start: 20070313, end: 20070429
  4. IDARUBICIN HCL [Suspect]
     Dosage: 14 MG
     Dates: start: 20070425, end: 20070429
  5. ETOPOSIDE [Suspect]
     Dosage: 180 MG
     Dates: start: 20070313, end: 20070426
  6. ZOPICLONE (ZOPICLONE) [Concomitant]
  7. FUROSEMIDE [Concomitant]
  8. METOPROLOL TARTRATE [Concomitant]
  9. FUNGIZONE [Concomitant]
  10. CIPROFLOXACIN [Concomitant]
  11. SPIRONOLACTONE [Concomitant]
  12. CODEINE (CODEINE PHOSPHATE) [Concomitant]
  13. VANCOMYCIN [Concomitant]
  14. CEFTAZIDIME [Concomitant]
  15. METOCLOPRAMIDE (METOCLOPRAMIDE) [Concomitant]
  16. PHYTOMENADION (PHYTOMENADIONE) [Concomitant]
  17. ACTRAPID HUMAN (INSULIN HUMAN) [Concomitant]
  18. ADALAT CC [Concomitant]
  19. CYKLOKAPRON [Concomitant]
  20. KYTRIL [Concomitant]
  21. MINRIN (DESMOPRESSIN) [Concomitant]
  22. SPONGOTAN (ABSORBABLE GELATIN SPONGE) [Concomitant]
  23. PANTOZOL (PANTOPRAZOLE SODIUM) [Concomitant]

REACTIONS (4)
  - ANAEMIA [None]
  - BLOOD PRESSURE SYSTOLIC INCREASED [None]
  - HYPOTENSION [None]
  - RECTAL HAEMORRHAGE [None]
